FAERS Safety Report 19412446 (Version 3)
Quarter: 2023Q4

REPORT INFORMATION
  Report Type: Spontaneous
  Country: US (occurrence: US)
  Receive Date: 20210614
  Receipt Date: 20231110
  Transmission Date: 20240109
  Serious: Yes (Other)
  Sender: FDA-Public Use
  Company Number: US-JNJFOC-20210607517

PATIENT
  Age: 50 Year
  Sex: Female

DRUGS (2)
  1. ELMIRON [Suspect]
     Active Substance: PENTOSAN POLYSULFATE SODIUM
     Indication: Cystitis interstitial
     Route: 048
     Dates: start: 2010, end: 202009
  2. ELMIRON [Suspect]
     Active Substance: PENTOSAN POLYSULFATE SODIUM
     Dosage: 2 100 MG CAPSULES TWICE A DAY
     Route: 048

REACTIONS (3)
  - Pigmentary maculopathy [Unknown]
  - Retinal dystrophy [Unknown]
  - Off label use [Unknown]

NARRATIVE: CASE EVENT DATE: 20200928
